FAERS Safety Report 9988622 (Version 3)
Quarter: 2015Q1

REPORT INFORMATION
  Report Type: Report from Study
  Country: IN (occurrence: IN)
  Receive Date: 20140310
  Receipt Date: 20150225
  Transmission Date: 20150721
  Serious: Yes (Death, Other)
  Sender: FDA-Public Use
  Company Number: IN-ROCHE-1357900

PATIENT

DRUGS (7)
  1. CAPECITABINE. [Suspect]
     Active Substance: CAPECITABINE
     Indication: GASTROOESOPHAGEAL CANCER
     Dosage: D1-21 EVERY 21 DAYS
     Route: 065
  2. OXALIPLATIN. [Suspect]
     Active Substance: OXALIPLATIN
     Indication: GASTROOESOPHAGEAL CANCER
     Dosage: ON D1
     Route: 065
  3. EPIRUBICIN [Suspect]
     Active Substance: EPIRUBICIN
     Indication: ADENOCARCINOMA GASTRIC
  4. CAPECITABINE. [Suspect]
     Active Substance: CAPECITABINE
     Dosage: D1-14 EVERY 21 DAYS
     Route: 065
  5. EPIRUBICIN [Suspect]
     Active Substance: EPIRUBICIN
     Indication: GASTROOESOPHAGEAL CANCER
     Dosage: D1
     Route: 042
  6. CAPECITABINE. [Suspect]
     Active Substance: CAPECITABINE
     Indication: ADENOCARCINOMA GASTRIC
     Dosage: D1-14 IN 2 DIVIDED DOSES
     Route: 065
  7. OXALIPLATIN. [Suspect]
     Active Substance: OXALIPLATIN
     Indication: ADENOCARCINOMA GASTRIC
     Dosage: ON D1-21 DAYS
     Route: 065

REACTIONS (15)
  - Thrombocytopenia [Unknown]
  - Extravasation [Unknown]
  - Palmar-plantar erythrodysaesthesia syndrome [Unknown]
  - Mucosal inflammation [Unknown]
  - Deep vein thrombosis [Unknown]
  - Sepsis [Fatal]
  - Nausea [Unknown]
  - Vomiting [Unknown]
  - Hiccups [Unknown]
  - Neuropathy peripheral [Unknown]
  - Hyponatraemic seizure [Unknown]
  - Fatigue [Unknown]
  - Transaminases increased [Unknown]
  - Diarrhoea [Unknown]
  - Febrile neutropenia [Unknown]
